FAERS Safety Report 5821224-2 (Version None)
Quarter: 2008Q3

REPORT INFORMATION
  Report Type: 
  Country: None (occurrence: None)
  Receive Date: 20080723
  Receipt Date: 20080716
  Transmission Date: 20090109
  Serious: Yes (Hospitalization)
  Sender: FDA-Public Use
  Company Number: APP200800677

PATIENT
  Age: 61 Year
  Sex: Female

DRUGS (8)
  1. HEPARIN SODIUM INJECTION [Suspect]
     Indication: HAEMODIALYSIS
     Dosage: 2000 USP UNITS, ONCE, INTRAVENOUS
     Route: 042
     Dates: start: 20080612, end: 20080612
  2. BUPROPION HCL [Concomitant]
  3. FLUTICASONE PROPIONATE [Concomitant]
  4. ESOMEPRAZOLE MAGNESIUM [Concomitant]
  5. SIMVASTATIN [Concomitant]
  6. ALBUTERON/IPRATROPIUM (SALBUTAMOL W/IPRATROPIUM) [Concomitant]
  7. ALPRAZOLAM [Concomitant]
  8. ANTIHYPERTENSIVE MEDICATION (ANTIHYPERTENSIVES) [Concomitant]

REACTIONS (3)
  - APHONIA [None]
  - NO THERAPEUTIC RESPONSE [None]
  - RESPIRATORY DISTRESS [None]
